FAERS Safety Report 21705633 (Version 1)
Quarter: 2022Q4

REPORT INFORMATION
  Report Type: Spontaneous
  Country: US (occurrence: None)
  Receive Date: 20221208
  Receipt Date: 20221208
  Transmission Date: 20230113
  Serious: No
  Sender: FDA-Public Use
  Company Number: None

PATIENT
  Age: 76 Year
  Sex: Female
  Weight: 75.57 kg

DRUGS (10)
  1. CAPECITABINE [Suspect]
     Active Substance: CAPECITABINE
     Indication: Breast cancer
     Dosage: OTHER QUANTITY : 1000-450MG;?FREQUENCY : TWICE A DAY;?
     Route: 048
     Dates: end: 20221207
  2. CAPECITABINE [Suspect]
     Active Substance: CAPECITABINE
     Indication: Breast cancer
     Dosage: OTHER QUANTITY : 450-1000MG;?FREQUENCY : TWICE A DAY;?
     Route: 048
     Dates: end: 20221207
  3. CYCLOBENZAPRINE [Concomitant]
     Active Substance: CYCLOBENZAPRINE
  4. DIPROLENE [Concomitant]
     Active Substance: BETAMETHASONE DIPROPIONATE
  5. FASLODEX [Concomitant]
     Active Substance: FULVESTRANT
  6. VITAMINS [Concomitant]
     Active Substance: VITAMINS
  7. TRAMADOL [Concomitant]
     Active Substance: TRAMADOL
  8. VENLAFAXINE [Concomitant]
     Active Substance: VENLAFAXINE HYDROCHLORIDE
  9. VITAMIN D3 [Concomitant]
     Active Substance: CHOLECALCIFEROL
  10. ZOLEDRONIC ACID [Concomitant]
     Active Substance: ZOLEDRONIC ACID

REACTIONS (1)
  - Palmar-plantar erythrodysaesthesia syndrome [None]
